FAERS Safety Report 7016867-7 (Version None)
Quarter: 2010Q3

REPORT INFORMATION
  Report Type: 
  Country: None (occurrence: None)
  Receive Date: 20100927
  Receipt Date: 20100917
  Transmission Date: 20110219
  Serious: Yes (Other)
  Sender: FDA-Public Use
  Company Number: CA-AMGEN-QUU430346

PATIENT
  Sex: Female

DRUGS (26)
  1. ARANESP [Suspect]
     Indication: DIALYSIS
     Route: 042
  2. DILTIAZEM [Concomitant]
     Dates: start: 20100107
  3. CIPROFLOXACIN [Concomitant]
     Dates: start: 20091130
  4. FUROSEMIDE [Concomitant]
     Dates: start: 20090514
  5. VITAMIN B COMPLEX WITH C [Concomitant]
     Dates: start: 20090611
  6. SERTRALINE HYDROCHLORIDE [Concomitant]
     Dates: start: 20100122
  7. LIPITOR [Concomitant]
     Dates: start: 20100122
  8. AGGRENOX [Concomitant]
     Dates: start: 20100218
  9. PENTOXIFYLLINE [Concomitant]
     Dates: start: 20100305
  10. CALCIUM CARBONATE [Concomitant]
     Dates: start: 20100122
  11. RAMIPRIL [Concomitant]
     Dates: start: 20100419
  12. HYDROMORPHONE HYDROCHLORIDE [Concomitant]
     Dates: start: 20100415
  13. REPAGLINIDE [Concomitant]
     Dates: start: 20100329
  14. OMEPRAZOLE [Concomitant]
     Dates: start: 20100401
  15. ACETAMINOPHEN [Concomitant]
     Dates: start: 20100203
  16. ENEMA [Concomitant]
     Dates: start: 20100422
  17. LORAZEPAM [Concomitant]
     Dates: start: 20091221
  18. ZOPICLONE [Concomitant]
     Dates: start: 20100326
  19. VENOFER [Concomitant]
     Dates: start: 20091013
  20. SENOKOT [Concomitant]
     Dates: start: 20090817
  21. CLOTRIMAZOLE [Concomitant]
     Dates: start: 20090615
  22. BETAMETHASONE VALERATE [Concomitant]
     Dates: start: 20090402
  23. GRAVOL TAB [Concomitant]
     Dates: start: 20090128
  24. HYDROCORTISONE ACETATE [Concomitant]
     Dates: start: 20090122
  25. VITAMIN B-12 [Concomitant]
     Route: 058
     Dates: start: 20090122
  26. MULTIVITAMIN [Concomitant]

REACTIONS (5)
  - ANAEMIA [None]
  - DIABETIC NEPHROPATHY [None]
  - FIBROMYALGIA [None]
  - GENERAL PHYSICAL HEALTH DETERIORATION [None]
  - URINARY TRACT INFECTION [None]
